FAERS Safety Report 15401980 (Version 1)
Quarter: 2018Q3

REPORT INFORMATION
  Report Type: Spontaneous
  Country: US (occurrence: US)
  Receive Date: 20180912
  Receipt Date: 20180912
  Transmission Date: 20181010
  Serious: No
  Sender: FDA-Public Use
  Company Number: None

PATIENT
  Age: 48 Year
  Sex: Female

DRUGS (1)
  1. BOTOX [Suspect]
     Active Substance: ONABOTULINUMTOXINA
     Route: 030
     Dates: start: 201711

REACTIONS (6)
  - Eyelid disorder [None]
  - Muscle twitching [None]
  - Injection site pain [None]
  - Product quality issue [None]
  - Corneal reflex decreased [None]
  - Drug ineffective [None]

NARRATIVE: CASE EVENT DATE: 20180823
